FAERS Safety Report 18140273 (Version 1)
Quarter: 2020Q3

REPORT INFORMATION
  Report Type: Spontaneous
  Country: GB (occurrence: GB)
  Receive Date: 20200812
  Receipt Date: 20200812
  Transmission Date: 20201103
  Serious: Yes (Hospitalization)
  Sender: FDA-Public Use
  Company Number: GB-ABBVIE-20K-167-3522461-00

PATIENT
  Age: 76 Year
  Sex: Female
  Weight: 62 kg

DRUGS (3)
  1. COTRIMOXAZOLE [Concomitant]
     Active Substance: SULFAMETHOXAZOLE\TRIMETHOPRIM
     Indication: ANTIFUNGAL PROPHYLAXIS
  2. DIGOXIN. [Concomitant]
     Active Substance: DIGOXIN
     Indication: ATRIAL FIBRILLATION
  3. IMBRUVICA [Suspect]
     Active Substance: IBRUTINIB
     Indication: LYMPHOMA
     Route: 048
     Dates: start: 20180524, end: 20200710

REACTIONS (3)
  - Diabetes mellitus [Recovering/Resolving]
  - Hyperglycaemia [Unknown]
  - Renal impairment [Unknown]

NARRATIVE: CASE EVENT DATE: 20200722
